FAERS Safety Report 24885174 (Version 1)
Quarter: 2025Q1

REPORT INFORMATION
  Report Type: Spontaneous
  Country: US (occurrence: US)
  Receive Date: 20250124
  Receipt Date: 20250124
  Transmission Date: 20250409
  Serious: Yes (Hospitalization, Other)
  Sender: ALEXION PHARMACEUTICALS
  Company Number: US-ASTRAZENECA-202501USA015245US

PATIENT
  Age: 56 Year

DRUGS (24)
  1. ULTOMIRIS [Suspect]
     Active Substance: RAVULIZUMAB-CWVZ
  2. CELLCEPT [Suspect]
     Active Substance: MYCOPHENOLATE MOFETIL
     Dosage: 250 MILLIGRAM, BID
  3. ALBUTEROL SULFATE [Concomitant]
     Active Substance: ALBUTEROL SULFATE
     Dosage: UNK, 150 ML,  2.5 MG /3 ML, PREMED TO INHALED TOBRAMYCIN Q12H
  4. NORVASC [Concomitant]
     Active Substance: AMLODIPINE BESYLATE
     Dosage: 5 MILLIGRAM, TWO TABLETS, QD
  5. MEPRON [Concomitant]
     Active Substance: ATOVAQUONE
     Dosage: 10 MILLILITER, QD
  6. VITAMIN D3 [Concomitant]
     Active Substance: CHOLECALCIFEROL
     Dosage: 125 MICROGRAM, ONE TABLET, QD
  7. CYCLOSPORINE [Concomitant]
     Active Substance: CYCLOSPORINE
     Dosage: 75 MILLIGRAM, BID
  8. DOMPERIDONE [Concomitant]
     Active Substance: DOMPERIDONE
     Dosage: 10 MILLIGRAM, QID
  9. ZORTRESS [Concomitant]
     Active Substance: EVEROLIMUS
  10. PEPCID [Concomitant]
     Active Substance: FAMOTIDINE
     Dosage: 20 MILLIGRAM, ONE TABLET QD
  11. PREVACID SOLUTAB [Concomitant]
     Active Substance: LANSOPRAZOLE
     Dosage: 30 MILLIGRAM, ONE TABLET BID
  12. LEVOTHYROXINE [Concomitant]
     Active Substance: LEVOTHYROXINE
     Dosage: 50 MICROGRAM, QD, ON AN EMPTY STOMACH
  13. SINGULAIR [Concomitant]
     Active Substance: MONTELUKAST SODIUM
     Dosage: 10 MILLIGRAM, ONE TABLET  QHS
  14. ZOFRAN [Concomitant]
     Active Substance: ONDANSETRON HYDROCHLORIDE
     Indication: Nausea
     Dosage: 4 MILLIGRAM, ONE TABLET Q8H, PRN, UPTO SEVEN DAYS
  15. ZOFRAN [Concomitant]
     Active Substance: ONDANSETRON HYDROCHLORIDE
     Indication: Vomiting
  16. VEETIDS [Concomitant]
     Active Substance: PENICILLIN V POTASSIUM
     Dosage: 500 MILLIGRAM, ONE TABLET, Q12H
  17. PRAVACHOL [Concomitant]
     Active Substance: PRAVASTATIN SODIUM
     Dosage: 10 MILLIGRAM, ONE TABLET, QHS
  18. DELTASONE [Concomitant]
     Active Substance: PREDNISONE
     Dosage: 5 MILLIGRAM, ONE TABLET QD
  19. TOBI [Concomitant]
     Active Substance: TOBRAMYCIN
     Dosage: 5 MILLILITER, Q12H, USE IN 1 MONTH ON MEDICATION
  20. VALCYTE [Concomitant]
     Active Substance: VALGANCICLOVIR HYDROCHLORIDE
     Dosage: 450 MILLIGRAM, ONE TABLET QD
  21. WIXELA INHUB [Concomitant]
     Active Substance: FLUTICASONE PROPIONATE\SALMETEROL XINAFOATE
     Dosage: UNK, ONE PUFF 250-50 MCG/DOSE Q12H
  22. LEVAQUIN [Concomitant]
     Active Substance: LEVOFLOXACIN
     Dosage: 750 MILLIGRAM, ONE TABLET  QD
  23. BACTRIM DS [Concomitant]
     Active Substance: SULFAMETHOXAZOLE\TRIMETHOPRIM
     Dosage: UNK, ONE TABLET 800-160 MG  BID
  24. CLOFAZIMINE [Concomitant]
     Active Substance: CLOFAZIMINE
     Indication: Atypical mycobacterial infection
     Dosage: 100 MILLIGRAM, QD
     Route: 065

REACTIONS (18)
  - Transplant rejection [Recovering/Resolving]
  - Chest pain [Unknown]
  - Mycobacterium fortuitum infection [Unknown]
  - Interstitial lung disease [Unknown]
  - Pulmonary arterial hypertension [Unknown]
  - Leukopenia [Unknown]
  - Cytopenia [Not Recovered/Not Resolved]
  - Stenotrophomonas infection [Unknown]
  - Aspergillus infection [Unknown]
  - Hot flush [Not Recovered/Not Resolved]
  - Night sweats [Not Recovered/Not Resolved]
  - Neutrophil count decreased [Unknown]
  - Lymphocyte count decreased [Unknown]
  - Glomerular filtration rate decreased [Unknown]
  - Pleural effusion [Unknown]
  - Lung disorder [Unknown]
  - Fungal infection [Unknown]
  - Cytomegalovirus test positive [Unknown]
